FAERS Safety Report 17217683 (Version 1)
Quarter: 2019Q4

REPORT INFORMATION
  Report Type: Spontaneous
  Country: US (occurrence: US)
  Receive Date: 20191231
  Receipt Date: 20191231
  Transmission Date: 20200122
  Serious: Yes (Other)
  Sender: FDA-Public Use
  Company Number: US-BRISTOL-MYERS SQUIBB COMPANY-BMS-2019-122770

PATIENT
  Sex: Male
  Weight: 58.9 kg

DRUGS (1)
  1. SPRYCEL [Suspect]
     Active Substance: DASATINIB
     Indication: HEPATIC CIRRHOSIS
     Dosage: 20 MILLIGRAM, QD
     Route: 048

REACTIONS (2)
  - Gastric infection [Not Recovered/Not Resolved]
  - Intentional product use issue [Unknown]
